FAERS Safety Report 23510007 (Version 2)
Quarter: 2024Q2

REPORT INFORMATION
  Report Type: Report from Study
  Country: CO (occurrence: CO)
  Receive Date: 20240211
  Receipt Date: 20240513
  Transmission Date: 20240715
  Serious: Yes (Hospitalization, Other)
  Sender: FDA-Public Use
  Company Number: CO-JNJFOC-20240207866

PATIENT
  Age: 20 Year
  Sex: Male
  Weight: 52 kg

DRUGS (4)
  1. INVEGA SUSTENNA [Suspect]
     Active Substance: PALIPERIDONE PALMITATE
     Indication: Schizophrenia
     Route: 030
     Dates: start: 20230810
  2. INVEGA SUSTENNA [Suspect]
     Active Substance: PALIPERIDONE PALMITATE
  3. INVEGA SUSTENNA [Suspect]
     Active Substance: PALIPERIDONE PALMITATE
  4. LEVOPROMAZIN [Concomitant]
     Active Substance: LEVOMEPROMAZINE

REACTIONS (5)
  - Depression [Recovering/Resolving]
  - Abdominal pain upper [Recovering/Resolving]
  - Anxiety [Recovering/Resolving]
  - Hallucinations, mixed [Recovering/Resolving]
  - Schizophrenia [Recovered/Resolved]

NARRATIVE: CASE EVENT DATE: 20240105
